FAERS Safety Report 9304888 (Version 2)
Quarter: 2013Q1

REPORT INFORMATION
  Report Type: Spontaneous
  Country: US (occurrence: None)
  Receive Date: 20130220
  Receipt Date: 20130314
  Transmission Date: 20140127
  Serious: Yes (Hospitalization, Other)
  Sender: FDA-Public Use
  Company Number: JPI-P-003338

PATIENT
  Age: 54 Year
  Sex: Female
  Weight: 90.72 kg

DRUGS (17)
  1. XYREM [Suspect]
     Indication: FIBROMYALGIA
     Route: 048
     Dates: start: 200304, end: 2007
  2. XYREM [Suspect]
     Indication: NARCOLEPSY
     Route: 048
     Dates: start: 200304, end: 2007
  3. STUDY MEDICATION [Suspect]
     Indication: FIBROMYALGIA
     Dates: start: 2000
  4. METHOCARBAMOL [Suspect]
     Indication: FIBROMYALGIA
     Dates: start: 200803
  5. PREGABALIN [Concomitant]
  6. DULOXETINE [Concomitant]
  7. LEVOTHYROXINE [Concomitant]
  8. LISINOPRIL [Concomitant]
  9. VITAMIN D [Concomitant]
  10. METFORMIN [Concomitant]
  11. METAXALONE [Concomitant]
  12. SUPPLEMENTS [Concomitant]
  13. NOVOLOG [Concomitant]
  14. FENOFIBRATE [Concomitant]
  15. OMEPRAZOLE [Concomitant]
  16. CREAMS [Concomitant]
  17. ATENOL [Concomitant]

REACTIONS (10)
  - Local swelling [None]
  - Local swelling [None]
  - Fall [None]
  - Ankle fracture [None]
  - Sleep apnoea syndrome [None]
  - Osteoarthritis [None]
  - Intervertebral disc protrusion [None]
  - Periorbital contusion [None]
  - Hypoaesthesia [None]
  - Pain in extremity [None]
